FAERS Safety Report 14655239 (Version 1)
Quarter: 2018Q1

REPORT INFORMATION
  Report Type: Spontaneous
  Country: US (occurrence: US)
  Receive Date: 20180319
  Receipt Date: 20180319
  Transmission Date: 20180509
  Serious: Yes (Other)
  Sender: FDA-Public Use
  Company Number: US-PROCTER_AND_GAMBLE-GS18029982

PATIENT

DRUGS (1)
  1. VICKS SINEX NOS [Suspect]
     Active Substance: OXYMETAZOLINE HYDROCHLORIDE OR PHENYLEPHRINE HYDROCHLORIDE
     Route: 045

REACTIONS (3)
  - Sinus congestion [Recovered/Resolved]
  - Drug dependence [Recovered/Resolved]
  - Incorrect drug administration duration [Recovered/Resolved]
